FAERS Safety Report 8257248-8 (Version None)
Quarter: 2012Q2

REPORT INFORMATION
  Report Type: 
  Country: None (occurrence: None)
  Receive Date: 20120403
  Receipt Date: 20120320
  Transmission Date: 20120825
  Serious: Yes (Hospitalization)
  Sender: FDA-Public Use
  Company Number: DE-BAXTER-2012BAX001036

PATIENT
  Age: 69 Year
  Sex: Female

DRUGS (3)
  1. EXTRANEAL [Suspect]
     Route: 033
     Dates: start: 20100531
  2. PHYSIONEAL 40 GLUCOSE 1,36 % W/V 13,6 MG/ML PERITONEALDIALYSELOSUNG [Suspect]
     Route: 033
     Dates: start: 20100531
  3. NUTRINEAL [Suspect]
     Route: 033
     Dates: start: 20100531

REACTIONS (1)
  - ATRIAL FIBRILLATION [None]
